FAERS Safety Report 6261523-6 (Version None)
Quarter: 2009Q3

REPORT INFORMATION
  Report Type: 
  Country: None (occurrence: None)
  Receive Date: 20090707
  Receipt Date: 20090707
  Transmission Date: 20100115
  Serious: Yes (Other)
  Sender: FDA-Public Use
  Company Number: None

PATIENT
  Age: 26 Year
  Sex: Female
  Weight: 58.9676 kg

DRUGS (1)
  1. YAZ [Suspect]
     Indication: ORAL CONTRACEPTION
     Dosage: 3MG  TABLET ONCE A DAY PO
     Route: 048
     Dates: start: 20080801, end: 20090527

REACTIONS (3)
  - CYSTITIS [None]
  - CYSTITIS NONINFECTIVE [None]
  - PELVIC PAIN [None]
